FAERS Safety Report 7726595-8 (Version None)
Quarter: 2011Q3

REPORT INFORMATION
  Report Type: 
  Country: None (occurrence: None)
  Receive Date: 20110902
  Receipt Date: 20110826
  Transmission Date: 20111222
  Serious: Yes (Other)
  Sender: FDA-Public Use
  Company Number: PHFR2011IE05047

PATIENT
  Sex: Male

DRUGS (1)
  1. CLOZAPINE [Suspect]
     Indication: SCHIZOPHRENIA
     Route: 048
     Dates: start: 19931201

REACTIONS (3)
  - BACK PAIN [None]
  - METASTASES TO KIDNEY [None]
  - MALIGNANT NEOPLASM OF SPINAL CORD [None]
